FAERS Safety Report 11337929 (Version 1)
Quarter: 2015Q3

REPORT INFORMATION
  Report Type: Spontaneous
  Country: US (occurrence: US)
  Receive Date: 20150803
  Receipt Date: 20150803
  Transmission Date: 20151125
  Serious: No
  Sender: FDA-Public Use
  Company Number: US-ELI_LILLY_AND_COMPANY-US201003004122

PATIENT
  Sex: Female

DRUGS (4)
  1. ZYPREXA [Suspect]
     Active Substance: OLANZAPINE
     Indication: ANXIETY
     Dates: start: 1994, end: 1996
  2. ZYPREXA [Suspect]
     Active Substance: OLANZAPINE
     Dates: start: 2007, end: 20070616
  3. HYDROCODONE [Concomitant]
     Active Substance: HYDROCODONE
  4. PRENATAL VITAMINS                  /01549301/ [Concomitant]
     Active Substance: VITAMINS

REACTIONS (10)
  - Off label use [Unknown]
  - Headache [Unknown]
  - Fatigue [Unknown]
  - Joint swelling [Unknown]
  - Constipation [Recovered/Resolved]
  - Postpartum depression [Recovering/Resolving]
  - Weight increased [Unknown]
  - Weight increased [Recovered/Resolved]
  - Gastric disorder [Unknown]
  - Exposure during pregnancy [Recovered/Resolved]

NARRATIVE: CASE EVENT DATE: 1994
